FAERS Safety Report 4550148-6 (Version None)
Quarter: 2005Q1

REPORT INFORMATION
  Report Type: 
  Country: None (occurrence: None)
  Receive Date: 20050107
  Receipt Date: 20041228
  Transmission Date: 20050727
  Serious: Yes (Other)
  Sender: FDA-Public Use
  Company Number: 2004121878

PATIENT
  Age: 66 Year
  Sex: Female
  Weight: 230 kg

DRUGS (5)
  1. CELEBREX [Suspect]
     Indication: INTERVERTEBRAL DISC DEGENERATION
     Dosage: 400 MG (200 MG, 2 IN 1 D), ORAL
     Route: 048
     Dates: end: 20041201
  2. ESCITALOPRAM 9ESCITALOPRAM) [Concomitant]
  3. OMEPRAZOLE [Concomitant]
  4. ACETYLSALICYLIC [Concomitant]
  5. THYROID (THYROID0 [Concomitant]

REACTIONS (1)
  - TRANSIENT ISCHAEMIC ATTACK [None]
